FAERS Safety Report 5038360-3 (Version None)
Quarter: 2006Q2

REPORT INFORMATION
  Report Type: 
  Country: None (occurrence: None)
  Receive Date: 20060601
  Receipt Date: 20060126
  Transmission Date: 20061013
  Serious: No
  Sender: FDA-Public Use
  Company Number: 2006PV007665

PATIENT

DRUGS (1)
  1. BYETTA [Suspect]
     Indication: DIABETES MELLITUS
     Dosage: 5 MCG
     Dates: start: 20051110, end: 20051201

REACTIONS (5)
  - ANOREXIA [None]
  - COUGH [None]
  - NAUSEA [None]
  - VOMITING [None]
  - WEIGHT DECREASED [None]
